FAERS Safety Report 5860087-6 (Version None)
Quarter: 2008Q3

REPORT INFORMATION
  Report Type: 
  Country: None (occurrence: None)
  Receive Date: 20080827
  Receipt Date: 20080821
  Transmission Date: 20090109
  Serious: Yes (Other)
  Sender: FDA-Public Use
  Company Number: CH-PFIZER INC-2008060582

PATIENT
  Sex: Male
  Weight: 66 kg

DRUGS (6)
  1. SORTIS [Suspect]
     Indication: ANGINA PECTORIS
     Route: 048
     Dates: start: 20080308, end: 20080415
  2. SORTIS [Suspect]
     Indication: CORONARY ARTERY DISEASE
  3. ADALAT [Concomitant]
     Indication: HYPERTENSION
     Dosage: DAILY DOSE:20MG-FREQ:DAILY
  4. NORVASC [Concomitant]
     Indication: ANGINA PECTORIS
  5. ASPIRIN [Concomitant]
     Indication: ANGINA PECTORIS
     Dosage: DAILY DOSE:100MG-FREQ:DAILY
  6. ASPIRIN [Concomitant]
     Indication: CORONARY ARTERY DISEASE

REACTIONS (2)
  - PSORIASIS [None]
  - VASCULITIS NECROTISING [None]
